FAERS Safety Report 5479273-2 (Version None)
Quarter: 2007Q4

REPORT INFORMATION
  Report Type: 
  Country: None (occurrence: None)
  Receive Date: 20071008
  Receipt Date: 20071001
  Transmission Date: 20080405
  Serious: Yes (Hospitalization)
  Sender: FDA-Public Use
  Company Number: FR-BRISTOL-MYERS SQUIBB COMPANY-13925946

PATIENT
  Age: 87 Year
  Sex: Female

DRUGS (8)
  1. COUMADIN [Suspect]
  2. KARDEGIC [Suspect]
  3. EUPANTOL [Concomitant]
  4. NOCTAMIDE [Concomitant]
  5. TAHOR [Concomitant]
  6. LASIX [Concomitant]
  7. ACETAMINOPHEN [Concomitant]
  8. SPASFON [Concomitant]

REACTIONS (4)
  - ANAEMIA [None]
  - HAEMATOMA [None]
  - INTERNATIONAL NORMALISED RATIO INCREASED [None]
  - STATUS EPILEPTICUS [None]
